FAERS Safety Report 4363786-0 (Version None)
Quarter: 2004Q2

REPORT INFORMATION
  Report Type: 
  Country: None (occurrence: None)
  Receive Date: 20040521
  Receipt Date: 20040512
  Transmission Date: 20050107
  Serious: Yes (Other)
  Sender: FDA-Public Use
  Company Number: 200411582GDS

PATIENT
  Age: 56 Year
  Sex: Female

DRUGS (7)
  1. AVELOX [Suspect]
     Indication: ASTHMA
     Dosage: 400 MG, TOTAL DAILY, ORAL
     Route: 048
     Dates: start: 20040405, end: 20040409
  2. AVELOX [Suspect]
     Indication: TRACHEOBRONCHITIS
     Dosage: 400 MG, TOTAL DAILY, ORAL
     Route: 048
     Dates: start: 20040405, end: 20040409
  3. ZANEDIP [Concomitant]
  4. LACIREX [Concomitant]
  5. EUTIROX [Concomitant]
  6. CARDIOASPIRIN [Concomitant]
  7. ZESTRIL [Concomitant]

REACTIONS (2)
  - DERMATITIS ATOPIC [None]
  - DERMATITIS EXFOLIATIVE [None]
